FAERS Safety Report 13015296 (Version 2)
Quarter: 2017Q2

REPORT INFORMATION
  Report Type: Report from Study
  Country: US (occurrence: US)
  Receive Date: 20161211
  Receipt Date: 20170417
  Transmission Date: 20170830
  Serious: Yes (Hospitalization, Other)
  Sender: FDA-Public Use
  Company Number: US-SA-2016SA223502

PATIENT
  Age: 8 Year
  Sex: Female

DRUGS (1)
  1. LUMIZYME [Suspect]
     Active Substance: ALGLUCOSIDASE ALFA
     Indication: GLYCOGEN STORAGE DISEASE TYPE II
     Dosage: DOSE: SOMEWHERE AROUND 670MG
     Route: 042

REACTIONS (3)
  - Seizure [Unknown]
  - Pneumonia [Unknown]
  - Hospitalisation [Not Recovered/Not Resolved]
